FAERS Safety Report 19086681 (Version 2)
Quarter: 2021Q4

REPORT INFORMATION
  Report Type: Spontaneous
  Country: JP (occurrence: JP)
  Receive Date: 20210402
  Receipt Date: 20211004
  Transmission Date: 20220303
  Serious: Yes (Other)
  Sender: FDA-Public Use
  Company Number: JP-LUPIN PHARMACEUTICALS INC.-2021-04045

PATIENT
  Age: 37 Year
  Sex: Female
  Weight: 45 kg

DRUGS (2)
  1. HYDROXYCHLOROQUINE [Suspect]
     Active Substance: HYDROXYCHLOROQUINE
     Indication: Systemic lupus erythematosus
     Dosage: 200 MILLIGRAM, QD (4.4MG/KG/DAY; IN A TOTAL OF 29 MONTHS THERAPY THE DOSE WAS INCREASED FOR 5 MONTHS
     Route: 065
  2. HYDROXYCHLOROQUINE [Suspect]
     Active Substance: HYDROXYCHLOROQUINE
     Dosage: 300 MILLIGRAM, QD (IN A TOTAL OF 29 MONTHS THERAPY THE DOSE WAS INCREASED FOR 5 MONTHS)
     Route: 065

REACTIONS (1)
  - Retinopathy [Recovered/Resolved]
